FAERS Safety Report 20781706 (Version 3)
Quarter: 2022Q2

REPORT INFORMATION
  Report Type: Spontaneous
  Country: US (occurrence: US)
  Receive Date: 20220504
  Receipt Date: 20220611
  Transmission Date: 20220721
  Serious: No
  Sender: FDA-Public Use
  Company Number: US-ELI_LILLY_AND_COMPANY-US202204012007

PATIENT
  Sex: Male
  Weight: 95.238 kg

DRUGS (6)
  1. ADCIRCA [Suspect]
     Active Substance: TADALAFIL
     Indication: Pulmonary arterial hypertension
     Dosage: UNK UNK, UNKNOWN
     Route: 065
  2. TYVASO [Suspect]
     Active Substance: TREPROSTINIL
     Indication: Pulmonary arterial hypertension
     Dosage: 18 BREATHS, QID
     Route: 055
     Dates: start: 20190206
  3. TYVASO [Suspect]
     Active Substance: TREPROSTINIL
     Dosage: 18 BREATHS, QID
     Route: 055
  4. TYVASO [Suspect]
     Active Substance: TREPROSTINIL
     Dosage: 18 BREATHS, QID
     Route: 055
  5. ADEMPAS [Suspect]
     Active Substance: RIOCIGUAT
     Indication: Product used for unknown indication
     Dosage: 1 MG, TID
     Route: 065
     Dates: start: 20220515
  6. ADEMPAS [Suspect]
     Active Substance: RIOCIGUAT
     Dosage: 1.5 MG, UNKNOWN
     Route: 065

REACTIONS (9)
  - Swelling [Unknown]
  - Fluid retention [Unknown]
  - Productive cough [Unknown]
  - Decreased appetite [Unknown]
  - Weight decreased [Unknown]
  - Epistaxis [Unknown]
  - Abdominal discomfort [Unknown]
  - Dizziness [Unknown]
  - Asthenia [Unknown]
